FAERS Safety Report 13256906 (Version 1)
Quarter: 2017Q1

REPORT INFORMATION
  Report Type: Spontaneous
  Country: DE (occurrence: DE)
  Receive Date: 20170221
  Receipt Date: 20170221
  Transmission Date: 20170428
  Serious: Yes (Other)
  Sender: FDA-Public Use
  Company Number: DE-TEVA-741147GER

PATIENT
  Sex: Male

DRUGS (8)
  1. PRAMIPEXOL-RATIOPHARM RETARDTABLETTEN [Interacting]
     Active Substance: PRAMIPEXOLE
     Dosage: .26 MILLIGRAM DAILY; EVERY SECOND DAY CURRENTLY
     Route: 048
  2. PRAMIPEXOL-RATIOPHARM RETARDTABLETTEN [Interacting]
     Active Substance: PRAMIPEXOLE
     Dosage: .52 MILLIGRAM DAILY;
     Route: 048
  3. LEVODOPA/BENSERAZID [Suspect]
     Active Substance: BENSERAZIDE\LEVODOPA
     Dosage: START WITH THIS DRUG
     Route: 065
  4. BISOPROLOL [Interacting]
     Active Substance: BISOPROLOL
     Route: 065
  5. TROSPIUM [Interacting]
     Active Substance: TROSPIUM
     Route: 065
  6. ATORVASTATIN [Interacting]
     Active Substance: ATORVASTATIN
     Route: 065
  7. PROPAFENON [Suspect]
     Active Substance: PROPAFENONE
     Route: 065
  8. COUMADIN [Interacting]
     Active Substance: WARFARIN SODIUM
     Route: 065

REACTIONS (7)
  - Abnormal dreams [Unknown]
  - Decreased appetite [Unknown]
  - Constipation [Unknown]
  - Pulmonary oedema [Recovered/Resolved]
  - Weight increased [Recovered/Resolved]
  - Drug interaction [Unknown]
  - Oedema [Recovered/Resolved]

NARRATIVE: CASE EVENT DATE: 201702
